FAERS Safety Report 9097071 (Version 2)
Quarter: 2013Q1

REPORT INFORMATION
  Report Type: Spontaneous
  Country: GR (occurrence: None)
  Receive Date: 20130123
  Receipt Date: 20130131
  Transmission Date: 20140127
  Serious: Yes (Death, Hospitalization)
  Sender: FDA-Public Use
  Company Number: 2013SP000323

PATIENT
  Age: 80 Year
  Sex: Female

DRUGS (3)
  1. FLUCONAZOLE [Suspect]
     Indication: INFECTION PROPHYLAXIS
  2. PIPERACILLIN (+) TAZOBACTAM [Suspect]
     Indication: MYELODYSPLASTIC SYNDROME
  3. AMIKACIN [Suspect]
     Indication: MYELODYSPLASTIC SYNDROME

REACTIONS (3)
  - Drug ineffective [None]
  - Zygomycosis [None]
  - Refusal of treatment by patient [None]
